FAERS Safety Report 22220101 (Version 1)
Quarter: 2023Q2

REPORT INFORMATION
  Report Type: Spontaneous
  Country: US (occurrence: US)
  Receive Date: 20230417
  Receipt Date: 20230417
  Transmission Date: 20230721
  Serious: No
  Sender: FDA-Public Use
  Company Number: US-ANIPHARMA-2022-US-014622

PATIENT
  Age: 67 Year
  Sex: Male
  Weight: 112.49 kg

DRUGS (9)
  1. NEBIVOLOL HYDROCHLORIDE [Suspect]
     Active Substance: NEBIVOLOL HYDROCHLORIDE
     Indication: Hypertension
     Dosage: 1 TABLET DAILY
     Route: 048
     Dates: start: 20220609
  2. LOSARTAN [Concomitant]
     Active Substance: LOSARTAN
  3. LASIX [Concomitant]
     Active Substance: FUROSEMIDE
  4. VOLTAREN [Concomitant]
     Active Substance: DICLOFENAC SODIUM
  5. VITAMINS [Concomitant]
     Active Substance: VITAMINS
  6. VITAMIN D3 [Concomitant]
     Active Substance: CHOLECALCIFEROL
  7. JWH-018 [Concomitant]
     Active Substance: JWH-018
  8. HERBALS [Concomitant]
     Active Substance: HERBALS
  9. VITAMIN C [Concomitant]
     Active Substance: ASCORBIC ACID

REACTIONS (1)
  - Drug ineffective [Not Recovered/Not Resolved]

NARRATIVE: CASE EVENT DATE: 20220609
